FAERS Safety Report 16727982 (Version 1)
Quarter: 2019Q3

REPORT INFORMATION
  Report Type: Spontaneous
  Country: CN (occurrence: CN)
  Receive Date: 20190822
  Receipt Date: 20190822
  Transmission Date: 20191005
  Serious: Yes (Other)
  Sender: FDA-Public Use
  Company Number: CN-ROCHE-2377407

PATIENT
  Age: 58 Year
  Sex: Male
  Weight: 64 kg

DRUGS (1)
  1. MABTHERA [Suspect]
     Active Substance: RITUXIMAB
     Indication: DIFFUSE LARGE B-CELL LYMPHOMA
     Route: 041
     Dates: start: 20190802, end: 20190802

REACTIONS (2)
  - Chills [Recovering/Resolving]
  - Temperature intolerance [Recovering/Resolving]

NARRATIVE: CASE EVENT DATE: 20190802
